FAERS Safety Report 9018838 (Version 2)
Quarter: 2014Q2

REPORT INFORMATION
  Report Type: Spontaneous
  Country: JP (occurrence: JP)
  Receive Date: 20130118
  Receipt Date: 20140602
  Transmission Date: 20141212
  Serious: Yes (Other)
  Sender: FDA-Public Use
  Company Number: PHHY2013JP003939

PATIENT
  Age: 89 Year
  Sex: Female

DRUGS (5)
  1. ETHAMBUTOL [Suspect]
     Indication: PERITONEAL TUBERCULOSIS
     Dosage: 750 MG, UNK
     Route: 048
  2. ISONIAZID [Suspect]
     Indication: PERITONEAL TUBERCULOSIS
     Dosage: 300 MG, UNK
     Route: 048
  3. RIFAMPICIN [Suspect]
     Indication: PERITONEAL TUBERCULOSIS
     Dosage: 450 MG, UNK
     Route: 048
  4. RIFAMPICIN [Suspect]
     Dosage: 300 MG, UNK
     Route: 048
  5. STREPTOMYCIN [Suspect]

REACTIONS (13)
  - Depressed level of consciousness [Recovering/Resolving]
  - Intestinal obstruction [Unknown]
  - Hyponatraemia [Recovered/Resolved]
  - Drug-induced liver injury [Unknown]
  - Jaundice [Recovered/Resolved]
  - Hepatic function abnormal [Recovered/Resolved]
  - Vomiting [Unknown]
  - Pyrexia [Unknown]
  - C-reactive protein increased [Unknown]
  - Abdominal distension [Unknown]
  - Ileus [Unknown]
  - Peritoneal tuberculosis [Recovered/Resolved]
  - Drug ineffective [Unknown]
